FAERS Safety Report 24531678 (Version 1)
Quarter: 2024Q4

REPORT INFORMATION
  Report Type: Report from Study
  Country: US (occurrence: US)
  Receive Date: 20241022
  Receipt Date: 20241022
  Transmission Date: 20250115
  Serious: No
  Sender: ROCHE
  Company Number: US-ROCHE-3090811

PATIENT
  Age: 77 Year
  Sex: Female

DRUGS (6)
  1. PULMOZYME [Suspect]
     Active Substance: DORNASE ALFA
     Indication: Laryngeal stenosis
     Dosage: 1MG/ML SOLUTION FOR INHALATION, 2.5 MG INTRAPLEURAL ONCE A DAY
     Route: 034
  2. PULMOZYME [Suspect]
     Active Substance: DORNASE ALFA
     Indication: Sputum abnormal
     Dosage: NEBULIZE THE CONTENTS OF 1 VIAL EVERY DAY
     Route: 065
  3. PULMOZYME [Suspect]
     Active Substance: DORNASE ALFA
     Indication: Increased bronchial secretion
     Route: 065
  4. PULMOZYME [Suspect]
     Active Substance: DORNASE ALFA
     Route: 065
  5. SODIUM CHLORIDE [Concomitant]
     Active Substance: SODIUM CHLORIDE
     Dosage: 1 VIAL
     Route: 011
  6. MUCINEX [Concomitant]
     Active Substance: GUAIFENESIN
     Route: 048

REACTIONS (2)
  - Off label use [Unknown]
  - Muscle spasticity [Unknown]
